FAERS Safety Report 12289208 (Version 1)
Quarter: 2016Q2

REPORT INFORMATION
  Report Type: Report from Study
  Country: HK (occurrence: HK)
  Receive Date: 20160421
  Receipt Date: 20160421
  Transmission Date: 20160815
  Serious: Yes (Death, Other)
  Sender: FDA-Public Use
  Company Number: HK-BAXTER-2016BAX020738

PATIENT
  Sex: Female

DRUGS (3)
  1. CLOFARABINE [Suspect]
     Active Substance: CLOFARABINE
     Indication: ACUTE LYMPHOCYTIC LEUKAEMIA REFRACTORY
     Route: 065
  2. ENDOXAN FOR INJ IG [Suspect]
     Active Substance: CYCLOPHOSPHAMIDE
     Indication: ACUTE LYMPHOCYTIC LEUKAEMIA REFRACTORY
     Route: 065
  3. ETOPOSIDE. [Suspect]
     Active Substance: ETOPOSIDE
     Indication: ACUTE LYMPHOCYTIC LEUKAEMIA REFRACTORY
     Route: 065

REACTIONS (8)
  - Therapy responder [Unknown]
  - Viraemia [Unknown]
  - Acinetobacter infection [Unknown]
  - Thrombocytopenia [Unknown]
  - Human herpesvirus 6 infection [Unknown]
  - Death [Fatal]
  - Acute lymphocytic leukaemia recurrent [Unknown]
  - Skin bacterial infection [Unknown]
